FAERS Safety Report 7302755-5 (Version None)
Quarter: 2011Q1

REPORT INFORMATION
  Report Type: 
  Country: None (occurrence: None)
  Receive Date: 20110218
  Receipt Date: 20110209
  Transmission Date: 20110831
  Serious: Yes (Other)
  Sender: FDA-Public Use
  Company Number: US-WATSON-2011-01634

PATIENT
  Sex: Female
  Weight: 59.9 kg

DRUGS (2)
  1. PREDNISONE (WATSON LABORATORIES) [Suspect]
     Indication: DERMATITIS CONTACT
     Dosage: 5 TABS PER DAY THEN TAPERING DOSE PER HCP
     Route: 048
     Dates: start: 20091201, end: 20100601
  2. ORAL CONTRACEPTIVE NOS [Concomitant]
     Indication: ORAL CONTRACEPTION
     Dosage: 1 TABLET, DAILY
     Route: 048

REACTIONS (4)
  - ARTHRALGIA [None]
  - JOINT DESTRUCTION [None]
  - JOINT STIFFNESS [None]
  - JOINT SWELLING [None]
